FAERS Safety Report 9320873 (Version 1)
Quarter: 2013Q2

REPORT INFORMATION
  Report Type: Spontaneous
  Country: US (occurrence: None)
  Receive Date: 20130529
  Receipt Date: 20130529
  Transmission Date: 20140414
  Serious: Yes (Hospitalization)
  Sender: FDA-Public Use
  Company Number: None

PATIENT
  Age: 74 Year
  Sex: Male
  Weight: 122.3 kg

DRUGS (2)
  1. FUROSEMIDE [Suspect]
     Indication: HYPERTENSION
     Dosage: AM
     Route: 048
     Dates: start: 20110201, end: 20130524
  2. GLYBURIDE [Suspect]
     Indication: TYPE 2 DIABETES MELLITUS
     Route: 048
     Dates: start: 20080513, end: 20130524

REACTIONS (3)
  - Renal failure acute [None]
  - Mental status changes [None]
  - Hypoglycaemia [None]
